FAERS Safety Report 4805777-9 (Version None)
Quarter: 2005Q4

REPORT INFORMATION
  Report Type: 
  Country: None (occurrence: None)
  Receive Date: 20051018
  Receipt Date: 20051003
  Transmission Date: 20060501
  Serious: Yes (Death)
  Sender: FDA-Public Use
  Company Number: MK200510-0005-1

PATIENT
  Age: 40 Year
  Sex: Female

DRUGS (1)
  1. OPTIRAY 320 [Suspect]
     Indication: COMPUTERISED TOMOGRAM ABNORMAL
     Dosage: 125 CC IV ONCE
     Route: 042
     Dates: start: 20051003, end: 20051003

REACTIONS (4)
  - CARDIAC ARREST [None]
  - MALAISE [None]
  - PULMONARY EMBOLISM [None]
  - VOMITING [None]
